FAERS Safety Report 9119535 (Version 2)
Quarter: 2013Q1

REPORT INFORMATION
  Report Type: Spontaneous
  Country: JP (occurrence: JP)
  Receive Date: 20130207
  Receipt Date: 20130312
  Transmission Date: 20140127
  Serious: Yes (Hospitalization)
  Sender: FDA-Public Use
  Company Number: JP-JNJFOC-20130201854

PATIENT
  Age: 85 Year
  Sex: Male
  Weight: 55 kg

DRUGS (11)
  1. XARELTO [Suspect]
     Indication: CEREBROVASCULAR ACCIDENT PROPHYLAXIS
     Route: 048
     Dates: start: 20130108, end: 20130114
  2. XARELTO [Suspect]
     Indication: CEREBROVASCULAR ACCIDENT PROPHYLAXIS
     Route: 048
     Dates: start: 20130115, end: 20130122
  3. XARELTO [Suspect]
     Indication: ATRIAL FIBRILLATION
     Route: 048
     Dates: start: 20130108, end: 20130114
  4. XARELTO [Suspect]
     Indication: ATRIAL FIBRILLATION
     Route: 048
     Dates: start: 20130115, end: 20130122
  5. MEXILETINE HYDROCHLORIDE [Concomitant]
     Indication: VENTRICULAR EXTRASYSTOLES
     Route: 048
  6. CETIRIZINE HYDROCHLORIDE [Concomitant]
     Indication: DERMATITIS ALLERGIC
     Route: 048
  7. SALOBEL [Concomitant]
     Indication: HYPERURICAEMIA
     Route: 048
     Dates: end: 20130124
  8. LASIX [Concomitant]
     Indication: CARDIAC FAILURE
     Route: 048
     Dates: start: 20120824
  9. SPIRONOLACTONE [Concomitant]
     Indication: CARDIAC FAILURE
     Route: 048
     Dates: start: 20130108, end: 20130118
  10. LANIRAPID [Concomitant]
     Indication: ATRIAL FIBRILLATION
     Route: 048
     Dates: start: 20130108
  11. HANP [Concomitant]
     Indication: CARDIAC FAILURE
     Route: 041
     Dates: start: 20130108, end: 20130115

REACTIONS (3)
  - Liver disorder [Recovering/Resolving]
  - Hyperkalaemia [Recovering/Resolving]
  - Renal impairment [Recovering/Resolving]
